FAERS Safety Report 21696989 (Version 1)
Quarter: 2022Q4

REPORT INFORMATION
  Report Type: Spontaneous
  Country: DE (occurrence: DE)
  Receive Date: 20221208
  Receipt Date: 20221208
  Transmission Date: 20230113
  Serious: Yes (Other)
  Sender: FDA-Public Use
  Company Number: None

PATIENT
  Age: 59 Year
  Sex: Female

DRUGS (4)
  1. GEMCITABINE [Suspect]
     Active Substance: GEMCITABINE
     Indication: Metastases to lung
     Dosage: UNK UNK, CYCLIC
     Route: 065
     Dates: start: 202105
  2. GEMCITABINE [Suspect]
     Active Substance: GEMCITABINE
     Indication: Bladder transitional cell carcinoma
  3. CISPLATIN [Suspect]
     Active Substance: CISPLATIN
     Indication: Bladder transitional cell carcinoma
     Dosage: UNK, CYCLIC
     Route: 065
     Dates: start: 202105
  4. CISPLATIN [Suspect]
     Active Substance: CISPLATIN
     Indication: Metastases to lung

REACTIONS (3)
  - Subclavian vein thrombosis [Unknown]
  - Axillary vein thrombosis [Unknown]
  - Product use in unapproved indication [Unknown]

NARRATIVE: CASE EVENT DATE: 20210606
